FAERS Safety Report 6486191-X (Version None)
Quarter: 2009Q4

REPORT INFORMATION
  Report Type: 
  Country: None (occurrence: None)
  Receive Date: 20091209
  Receipt Date: 20090722
  Transmission Date: 20100525
  Serious: No
  Sender: FDA-Public Use
  Company Number: US-AMGEN-KDL356904

PATIENT
  Sex: Female

DRUGS (1)
  1. ENBREL [Suspect]
     Indication: JUVENILE ARTHRITIS
     Route: 058
     Dates: start: 20080207, end: 20090709

REACTIONS (4)
  - DYSPHAGIA [None]
  - MOUTH ULCERATION [None]
  - PAIN [None]
  - RESPIRATORY TRACT INFECTION [None]
